FAERS Safety Report 5314803-2 (Version None)
Quarter: 2007Q2

REPORT INFORMATION
  Report Type: 
  Country: None (occurrence: None)
  Receive Date: 20070502
  Receipt Date: 20070425
  Transmission Date: 20071010
  Serious: Yes (Hospitalization, Disabling)
  Sender: FDA-Public Use
  Company Number: IL-GLAXOSMITHKLINE-B0468699A

PATIENT
  Sex: Male

DRUGS (1)
  1. MALARONE [Suspect]
     Indication: DRUG USE FOR UNKNOWN INDICATION
     Route: 065

REACTIONS (2)
  - BLINDNESS UNILATERAL [None]
  - VISUAL ACUITY REDUCED [None]
